FAERS Safety Report 18302550 (Version 1)
Quarter: 2020Q3

REPORT INFORMATION
  Report Type: Spontaneous
  Country: CN (occurrence: CN)
  Receive Date: 20200923
  Receipt Date: 20200923
  Transmission Date: 20201103
  Serious: Yes (Other)
  Sender: FDA-Public Use
  Company Number: CN-FRESENIUS KABI-FK202009759

PATIENT
  Age: 48 Year
  Sex: Female

DRUGS (6)
  1. PROGESTERONE INJECTION USP [Suspect]
     Active Substance: PROGESTERONE
     Indication: DYSFUNCTIONAL UTERINE BLEEDING
  2. NO DRUG NAME [Suspect]
     Active Substance: UNSPECIFIED INGREDIENT
     Indication: ADENOMYOSIS
     Dosage: UNKNOWN
     Route: 030
  3. NO DRUG NAME [Suspect]
     Active Substance: UNSPECIFIED INGREDIENT
     Indication: DYSFUNCTIONAL UTERINE BLEEDING
  4. ESTRADIOL. [Suspect]
     Active Substance: ESTRADIOL
     Indication: DYSFUNCTIONAL UTERINE BLEEDING
  5. PROGESTERONE INJECTION USP [Suspect]
     Active Substance: PROGESTERONE
     Indication: ADENOMYOSIS
     Dosage: UNKNOWN
     Route: 030
  6. ESTRADIOL. [Suspect]
     Active Substance: ESTRADIOL
     Indication: ADENOMYOSIS
     Dosage: UNKNOWN
     Route: 030

REACTIONS (2)
  - Thyroid cancer [Recovered/Resolved]
  - Invasive ductal breast carcinoma [Recovered/Resolved]

NARRATIVE: CASE EVENT DATE: 201803
